FAERS Safety Report 9993276 (Version 2)
Quarter: 2014Q2

REPORT INFORMATION
  Report Type: Spontaneous
  Country: IT (occurrence: IT)
  Receive Date: 20140310
  Receipt Date: 20140507
  Transmission Date: 20141212
  Serious: Yes (Hospitalization)
  Sender: FDA-Public Use
  Company Number: IT-PFIZER INC-2014064641

PATIENT
  Age: 14 Month
  Sex: Male

DRUGS (2)
  1. TORVAST [Suspect]
     Dosage: 10 MG, TOTAL DOSAGE
     Route: 048
     Dates: start: 20100325, end: 20100325
  2. NORMOTHEN [Suspect]
     Dosage: 4 MG, TOTAL DOSAGE
     Route: 048
     Dates: start: 20100325, end: 20100325

REACTIONS (2)
  - Drug administration error [Recovered/Resolved]
  - Sopor [Recovered/Resolved]
